FAERS Safety Report 18019569 (Version 1)
Quarter: 2020Q3

REPORT INFORMATION
  Report Type: Report from Study
  Country: CA (occurrence: CA)
  Receive Date: 20200714
  Receipt Date: 20200714
  Transmission Date: 20201103
  Serious: Yes (Other)
  Sender: FDA-Public Use
  Company Number: CA-ACCORD-189939

PATIENT
  Sex: Female

DRUGS (4)
  1. RITUXIMAB. [Suspect]
     Active Substance: RITUXIMAB
     Indication: PEMPHIGUS
     Route: 065
  2. MYCOPHENOLIC ACID. [Suspect]
     Active Substance: MYCOPHENOLIC ACID
     Indication: PEMPHIGUS
     Route: 065
  3. MYCOPHENOLIC ACID. [Suspect]
     Active Substance: MYCOPHENOLIC ACID
     Indication: PEMPHIGUS
     Dosage: 2 EVERY 1 DAYS
     Route: 048
  4. PREDNISONE. [Suspect]
     Active Substance: PREDNISONE
     Indication: PEMPHIGUS
     Dosage: 1 EVERY 1 DAYS
     Route: 048

REACTIONS (4)
  - Intentional product use issue [Unknown]
  - Abdominal discomfort [Unknown]
  - Steroid diabetes [Unknown]
  - Off label use [Unknown]
